FAERS Safety Report 25281396 (Version 3)
Quarter: 2025Q4

REPORT INFORMATION
  Report Type: Spontaneous
  Country: US (occurrence: US)
  Receive Date: 20250508
  Receipt Date: 20251013
  Transmission Date: 20260117
  Serious: No
  Sender: CSL BEHRING
  Company Number: US-BEH-2025203942

PATIENT
  Age: 52 Year
  Sex: Female

DRUGS (9)
  1. HIZENTRA [Suspect]
     Active Substance: HUMAN IMMUNOGLOBULIN G
     Indication: Hypogammaglobulinaemia
     Dosage: 16 G, QW
     Route: 058
     Dates: start: 201702
  2. HIZENTRA [Suspect]
     Active Substance: HUMAN IMMUNOGLOBULIN G
     Indication: Immunodeficiency common variable
  3. DUPIXENT [Suspect]
     Active Substance: DUPILUMAB
     Indication: Hypogammaglobulinaemia
     Dosage: 300 MG
     Route: 058
     Dates: start: 202502
  4. DUPIXENT [Suspect]
     Active Substance: DUPILUMAB
     Indication: Nasal polyps
  5. DUPIXENT [Suspect]
     Active Substance: DUPILUMAB
     Indication: Chronic sinusitis
  6. DUPIXENT [Suspect]
     Active Substance: DUPILUMAB
     Indication: Immunodeficiency common variable
  7. EPINEPHRINE [Concomitant]
     Active Substance: EPINEPHRINE
     Indication: Nasal polyps
  8. DUPIXENT [Concomitant]
     Active Substance: DUPILUMAB
     Dosage: 300MG/2ML
  9. NUCALA [Concomitant]
     Active Substance: MEPOLIZUMAB
     Indication: Nasal polyps

REACTIONS (14)
  - Headache [Unknown]
  - Pain [Unknown]
  - Pruritus [Unknown]
  - Swelling [Unknown]
  - Illness [Unknown]
  - Malaise [Unknown]
  - Infection [Unknown]
  - Condition aggravated [Unknown]
  - Pain [Unknown]
  - Pruritus [Unknown]
  - Headache [Unknown]
  - Swelling [Unknown]
  - Fatigue [Unknown]
  - Infusion related reaction [Unknown]

NARRATIVE: CASE EVENT DATE: 20250101
